FAERS Safety Report 13049853 (Version 1)
Quarter: 2016Q4

REPORT INFORMATION
  Report Type: Spontaneous
  Country: US (occurrence: US)
  Receive Date: 20161221
  Receipt Date: 20161221
  Transmission Date: 20170207
  Serious: Yes (Life-Threatening, Hospitalization, Other)
  Sender: FDA-Public Use
  Company Number: US-DRREDDYS-USA/USA/16/0083363

PATIENT
  Age: 12 Year
  Sex: Male

DRUGS (11)
  1. METHYLPHENIDATE HYDROCHLORIDE. [Suspect]
     Active Substance: METHYLPHENIDATE HYDROCHLORIDE
     Indication: PRODUCT USED FOR UNKNOWN INDICATION
     Dosage: ONCE IN MORNING
  2. PAROXETINE. [Interacting]
     Active Substance: PAROXETINE
     Indication: PRODUCT USED FOR UNKNOWN INDICATION
     Dosage: PAROXETINE 40 MG Q AM
  3. RISPERIDONE. [Suspect]
     Active Substance: RISPERIDONE
  4. LORAZEPAM. [Concomitant]
     Active Substance: LORAZEPAM
     Indication: DYSKINESIA
     Route: 042
  5. RISPERIDONE. [Suspect]
     Active Substance: RISPERIDONE
     Indication: PRODUCT USED FOR UNKNOWN INDICATION
     Dosage: 0.5 MG Q AM
  6. RISPERIDONE. [Suspect]
     Active Substance: RISPERIDONE
     Dosage: 1 MG AT BEDTIME
  7. PRAMIPEXOLE. [Interacting]
     Active Substance: PRAMIPEXOLE
     Indication: PRODUCT USED FOR UNKNOWN INDICATION
     Dosage: AT BEDTIME
  8. VALPROIC ACID. [Suspect]
     Active Substance: VALPROIC ACID
     Indication: COMPLEX PARTIAL SEIZURES
     Dosage: 375 MG Q AM
  9. MELATONIN [Concomitant]
     Active Substance: MELATONIN
     Indication: SLEEP DISORDER
     Dosage: AT BEDTIME AS NEEDED
  10. LORAZEPAM. [Concomitant]
     Active Substance: LORAZEPAM
     Indication: MENTAL STATUS CHANGES
     Route: 065
  11. VALPROIC ACID. [Suspect]
     Active Substance: VALPROIC ACID
     Dosage: 500 MG AT BEDTIME

REACTIONS (2)
  - Neuroleptic malignant syndrome [Recovering/Resolving]
  - Drug interaction [Unknown]
